FAERS Safety Report 10487093 (Version 1)
Quarter: 2014Q3

REPORT INFORMATION
  Report Type: Spontaneous
  Country: US (occurrence: None)
  Receive Date: 20140930
  Receipt Date: 20140930
  Transmission Date: 20150326
  Serious: Yes (Hospitalization)
  Sender: FDA-Public Use
  Company Number: None

PATIENT
  Age: 78 Year
  Sex: Male
  Weight: 71.8 kg

DRUGS (2)
  1. OXALIPLATIN. [Suspect]
     Active Substance: OXALIPLATIN
     Dosage: EVERY OTHER WEEK WITH RADIATION
  2. 5-FLOUROURACIL [Suspect]
     Active Substance: FLUOROURACIL
     Dosage: WEEKLY WITH RADIATION

REACTIONS (3)
  - Weight decreased [None]
  - Abdominal pain [None]
  - Lacrimation increased [None]

NARRATIVE: CASE EVENT DATE: 20140919
